FAERS Safety Report 9522479 (Version 2)
Quarter: 2013Q3

REPORT INFORMATION
  Report Type: Spontaneous
  Country: US (occurrence: US)
  Receive Date: 20130913
  Receipt Date: 20130920
  Transmission Date: 20140515
  Serious: Yes (Other)
  Sender: FDA-Public Use
  Company Number: US-GILEAD-2013-0083285

PATIENT
  Sex: Female

DRUGS (19)
  1. LETAIRIS [Suspect]
     Indication: PULMONARY ARTERIAL HYPERTENSION
     Dosage: 5 MG, QD
     Dates: start: 20130625
  2. LETAIRIS [Suspect]
     Indication: HEART DISEASE CONGENITAL
  3. ASPIRIN [Concomitant]
  4. ATORVASTATIN [Concomitant]
  5. BECLOMETHASONE                     /00212602/ [Concomitant]
  6. LANOXIN [Concomitant]
  7. TIAZAC                             /00489702/ [Concomitant]
  8. LASIX                              /00032601/ [Concomitant]
  9. GLUCOTROL [Concomitant]
  10. IMDUR [Concomitant]
  11. GLUCOPHAGE [Concomitant]
  12. PRILOSEC                           /00661201/ [Concomitant]
  13. DONNATAL [Concomitant]
  14. POTASSIUM CHLORIDE [Concomitant]
  15. SPIRIVA [Concomitant]
  16. COUMADIN                           /00014802/ [Concomitant]
  17. OGEN [Concomitant]
  18. KLOR-CON M10 [Concomitant]
  19. LOPRESSOR [Concomitant]
     Dosage: UNK
     Dates: start: 20130801, end: 20130909

REACTIONS (11)
  - Atrial fibrillation [Unknown]
  - Respiratory tract congestion [Unknown]
  - Ear pain [Unknown]
  - Chest discomfort [Unknown]
  - Weight increased [Unknown]
  - Oxygen saturation decreased [Unknown]
  - Productive cough [Unknown]
  - Sputum discoloured [Unknown]
  - Sinus congestion [Unknown]
  - Dizziness [Unknown]
  - Dyspnoea [Unknown]
